FAERS Safety Report 6370629-2 (Version None)
Quarter: 2009Q3

REPORT INFORMATION
  Report Type: 
  Country: None (occurrence: None)
  Receive Date: 20090918
  Receipt Date: 20090908
  Transmission Date: 20100115
  Serious: Yes (Hospitalization)
  Sender: FDA-Public Use
  Company Number: 2009AL005979

PATIENT
  Age: 36 Year
  Sex: Female

DRUGS (3)
  1. EPIRUBICIN HCL [Suspect]
  2. CYCLOPHOSPHAMIDE [Concomitant]
  3. PACLITAXEL [Concomitant]

REACTIONS (2)
  - CELLULITIS [None]
  - EAR INFECTION [None]
